FAERS Safety Report 12823537 (Version 2)
Quarter: 2016Q4

REPORT INFORMATION
  Report Type: Spontaneous
  Country: HK (occurrence: HK)
  Receive Date: 20161006
  Receipt Date: 20161107
  Transmission Date: 20170207
  Serious: Yes (Other)
  Sender: FDA-Public Use
  Company Number: HK-BAYER-2016-193200

PATIENT
  Age: 65 Year
  Sex: Male

DRUGS (10)
  1. NAPROXEN. [Concomitant]
     Active Substance: NAPROXEN
     Dosage: 500 MG, BID
     Dates: start: 20160802, end: 20161002
  2. LYRICA [Concomitant]
     Active Substance: PREGABALIN
     Dosage: 100 MG TDS AND 100 MG NOCTE
  3. XOFIGO [Suspect]
     Active Substance: RADIUM RA-223 DICHLORIDE
     Indication: HORMONE-REFRACTORY PROSTATE CANCER
     Dosage: 55KBQ/KG BODY WEIGHT EVERY 4 WEEKS
     Route: 042
     Dates: start: 20160929, end: 20160929
  4. XOFIGO [Suspect]
     Active Substance: RADIUM RA-223 DICHLORIDE
     Indication: METASTASES TO BONE
  5. DENOSUMAB [Concomitant]
     Active Substance: DENOSUMAB
     Dosage: 120 MG, QD
     Route: 058
     Dates: start: 20160203, end: 20160928
  6. CALCIUM CARBONATE [CALCIUM CARBONATE] [Concomitant]
     Dosage: UNK
     Dates: start: 20160203, end: 20161002
  7. NORVASC [Concomitant]
     Active Substance: AMLODIPINE BESYLATE
     Dosage: UNK
     Dates: start: 20150417, end: 20161002
  8. COLACE [Concomitant]
     Active Substance: DOCUSATE SODIUM
     Dosage: 100 MG, BID
     Dates: start: 20160203, end: 20161002
  9. LACTULOSE. [Concomitant]
     Active Substance: LACTULOSE
     Dosage: 10 ML TDS
     Dates: start: 20160816, end: 20161002
  10. OXYCODONE [Concomitant]
     Active Substance: OXYCODONE
     Dosage: 25 MG, Q4HR

REACTIONS (1)
  - Haemorrhage intracranial [None]

NARRATIVE: CASE EVENT DATE: 20161001
